FAERS Safety Report 5447379-X (Version None)
Quarter: 2007Q3

REPORT INFORMATION
  Report Type: 
  Country: None (occurrence: None)
  Receive Date: 20070905
  Receipt Date: 20070905
  Transmission Date: 20080115
  Serious: Yes (Hospitalization)
  Sender: FDA-Public Use
  Company Number: None

PATIENT
  Sex: Female
  Weight: 62.2 kg

DRUGS (1)
  1. ALIMTA [Suspect]
     Dosage: 825 MG
     Dates: start: 20070307

REACTIONS (5)
  - BREAST SWELLING [None]
  - ERYTHEMA [None]
  - LYMPHOEDEMA [None]
  - RADIATION EXPOSURE [None]
  - SKIN WARM [None]
